FAERS Safety Report 14218679 (Version 1)
Quarter: 2017Q4

REPORT INFORMATION
  Report Type: Report from Study
  Country: US (occurrence: US)
  Receive Date: 20171123
  Receipt Date: 20171123
  Transmission Date: 20180321
  Serious: Yes (Other)
  Sender: FDA-Public Use
  Company Number: US-UCBSA-2017046497

PATIENT
  Age: 8 Year
  Sex: Female

DRUGS (1)
  1. LEVETIRACETAM. [Suspect]
     Active Substance: LEVETIRACETAM
     Indication: SEIZURE
     Dosage: UNK
     Dates: start: 201710

REACTIONS (3)
  - Drug ineffective [Unknown]
  - Seizure [Not Recovered/Not Resolved]
  - Irritability [Unknown]

NARRATIVE: CASE EVENT DATE: 201710
